FAERS Safety Report 25331919 (Version 1)
Quarter: 2025Q2

REPORT INFORMATION
  Report Type: Spontaneous
  Country: HR (occurrence: HR)
  Receive Date: 20250519
  Receipt Date: 20250519
  Transmission Date: 20250717
  Serious: Yes (Hospitalization, Other)
  Sender: BAYER HEALTHCARE PHARMACEUTICALS INC.
  Company Number: HR-BAYER-2025A063557

PATIENT
  Age: 66 Year
  Sex: Male

DRUGS (2)
  1. NUBEQA [Suspect]
     Active Substance: DAROLUTAMIDE
     Dosage: 1200 MG DAILY
     Dates: start: 202406
  2. DOCETAXEL [Concomitant]
     Active Substance: DOCETAXEL
     Dates: start: 202407, end: 202407

REACTIONS (20)
  - Acute kidney injury [None]
  - Haematuria [None]
  - Hepatic lesion [Recovered/Resolved]
  - Pneumoperitoneum [Recovered/Resolved]
  - Peritonitis [None]
  - Prostate infection [Not Recovered/Not Resolved]
  - Urinary tract infection [Not Recovered/Not Resolved]
  - Metastases to bladder [Not Recovered/Not Resolved]
  - Nausea [None]
  - Vomiting [None]
  - Prostatic specific antigen increased [None]
  - Blood creatinine increased [None]
  - C-reactive protein increased [None]
  - Pallor [None]
  - Pelvic pain [None]
  - General physical health deterioration [Recovering/Resolving]
  - Eastern Cooperative Oncology Group performance status worsened [None]
  - Pyrexia [None]
  - Fluid retention [None]
  - Asthenia [None]

NARRATIVE: CASE EVENT DATE: 20250101
